FAERS Safety Report 23197512 (Version 6)
Quarter: 2024Q1

REPORT INFORMATION
  Report Type: Spontaneous
  Country: CL (occurrence: CL)
  Receive Date: 20231117
  Receipt Date: 20240126
  Transmission Date: 20240410
  Serious: No
  Sender: FDA-Public Use
  Company Number: CL-PFIZER INC-PV202300184057

PATIENT
  Age: 12 Year
  Sex: Male

DRUGS (1)
  1. GENOTROPIN [Suspect]
     Active Substance: SOMATROPIN
     Dosage: UNK

REACTIONS (8)
  - Injection site irritation [Unknown]
  - Injection site rash [Unknown]
  - Injection site pain [Unknown]
  - Injection site injury [Unknown]
  - Injection site discomfort [Unknown]
  - Device physical property issue [Unknown]
  - Needle issue [Unknown]
  - Device use issue [Unknown]
